FAERS Safety Report 5247376-3 (Version None)
Quarter: 2007Q1

REPORT INFORMATION
  Report Type: 
  Country: None (occurrence: None)
  Receive Date: 20070216
  Receipt Date: 20070205
  Transmission Date: 20070707
  Serious: Yes (Hospitalization)
  Sender: FDA-Public Use
  Company Number: TCI2007A00598

PATIENT
  Age: 70 Year
  Sex: Male

DRUGS (6)
  1. ACTOS [Suspect]
     Indication: DIABETES MELLITUS NON-INSULIN-DEPENDENT
     Dosage: 15 MG (15 MG, 1 D)
     Route: 048
     Dates: start: 20060826, end: 20061119
  2. NORVASC [Concomitant]
  3. AMARYL [Concomitant]
  4. ENALAPRIL MALEATE [Concomitant]
  5. METFORMIN HYDROCHLORIDE [Concomitant]
  6. MUCOSTA (REBAMIPIDE) [Concomitant]

REACTIONS (3)
  - ATRIOVENTRICULAR BLOCK COMPLETE [None]
  - ATRIOVENTRICULAR BLOCK SECOND DEGREE [None]
  - BRADYCARDIA [None]
